FAERS Safety Report 14478959 (Version 2)
Quarter: 2018Q2

REPORT INFORMATION
  Report Type: Spontaneous
  Country: JP (occurrence: JP)
  Receive Date: 20180202
  Receipt Date: 20180430
  Transmission Date: 20180711
  Serious: Yes (Death, Hospitalization, Other)
  Sender: FDA-Public Use
  Company Number: JP-CLINIGEN GROUP PLC/ CLINIGEN HEALTHCARE LTD-JP-CLGN-18-00025

PATIENT
  Age: 67 Year
  Sex: Male
  Weight: 66 kg

DRUGS (14)
  1. FOSCAVIR [Suspect]
     Active Substance: FOSCARNET SODIUM
     Indication: ENCEPHALITIS CYTOMEGALOVIRUS
     Route: 042
     Dates: start: 20140610
  2. ATG [Concomitant]
     Active Substance: LAPINE T-LYMPHOCYTE IMMUNE GLOBULIN
     Indication: STEM CELL TRANSPLANT
  3. GANCICLOVIR. [Concomitant]
     Active Substance: GANCICLOVIR
  4. MEL [Concomitant]
     Indication: STEM CELL TRANSPLANT
  5. VALGANCICLOVIR. [Concomitant]
     Active Substance: VALGANCICLOVIR
     Indication: CYTOMEGALOVIRUS TEST POSITIVE
  6. FOSCAVIR [Suspect]
     Active Substance: FOSCARNET SODIUM
  7. RITUXIMAB. [Concomitant]
     Active Substance: RITUXIMAB
     Indication: EPSTEIN-BARR VIRUS ASSOCIATED LYMPHOPROLIFERATIVE DISORDER
  8. FOSCAVIR [Suspect]
     Active Substance: FOSCARNET SODIUM
  9. FOSCAVIR [Suspect]
     Active Substance: FOSCARNET SODIUM
     Route: 042
     Dates: start: 201406
  10. GANCICLOVIR. [Concomitant]
     Active Substance: GANCICLOVIR
  11. SMTX [Concomitant]
     Indication: PROPHYLAXIS AGAINST GRAFT VERSUS HOST DISEASE
  12. GANCICLOVIR. [Concomitant]
     Active Substance: GANCICLOVIR
     Indication: CYTOMEGALOVIRUS TEST POSITIVE
  13. FLU [Concomitant]
     Active Substance: INFLUENZA VIRUS VACCINE
     Indication: STEM CELL TRANSPLANT
  14. CSA [Concomitant]
     Active Substance: CYCLOSPORINE
     Indication: PROPHYLAXIS AGAINST GRAFT VERSUS HOST DISEASE

REACTIONS (4)
  - Rash [Unknown]
  - Disease progression [Fatal]
  - Encephalitis cytomegalovirus [Fatal]
  - Renal disorder [Unknown]

NARRATIVE: CASE EVENT DATE: 201407
